FAERS Safety Report 17190577 (Version 1)
Quarter: 2019Q4

REPORT INFORMATION
  Report Type: Spontaneous
  Country: US (occurrence: US)
  Receive Date: 20191223
  Receipt Date: 20191223
  Transmission Date: 20200122
  Serious: No
  Sender: FDA-Public Use
  Company Number: US-BAYER-2019-232979

PATIENT
  Age: 67 Year
  Sex: Female

DRUGS (4)
  1. PRAVASTATIN. [Concomitant]
     Active Substance: PRAVASTATIN
     Dosage: UNK
  2. CLARITIN [Suspect]
     Active Substance: LORATADINE
     Indication: NASOPHARYNGITIS
     Dosage: 1 DF
     Route: 048
     Dates: start: 20191217, end: 20191217
  3. ACTINOL [Concomitant]
     Dosage: UNK
  4. RESTASIS [Concomitant]
     Active Substance: CYCLOSPORINE
     Dosage: UNK

REACTIONS (2)
  - Rash pruritic [Not Recovered/Not Resolved]
  - Product use in unapproved indication [Unknown]

NARRATIVE: CASE EVENT DATE: 20191217
